FAERS Safety Report 9683959 (Version 1)
Quarter: 2013Q4

REPORT INFORMATION
  Report Type: Spontaneous
  Country: US (occurrence: US)
  Receive Date: 20131112
  Receipt Date: 20131112
  Transmission Date: 20140711
  Serious: Yes (Death, Hospitalization)
  Sender: FDA-Public Use
  Company Number: PHHY2013US125116

PATIENT
  Age: 29 Year
  Sex: Female

DRUGS (5)
  1. IBUPROFEN [Suspect]
  2. BUPROPION [Suspect]
  3. ESCITALOPRAM [Suspect]
  4. QUETIAPINE [Suspect]
  5. DESVENLAFAXINE [Suspect]

REACTIONS (7)
  - Brain injury [Fatal]
  - Circulatory collapse [Unknown]
  - Cardiac arrest [Unknown]
  - Pulseless electrical activity [Unknown]
  - Sinus tachycardia [Unknown]
  - Hypotension [Unknown]
  - Overdose [Unknown]
